FAERS Safety Report 8535436-0 (Version None)
Quarter: 2012Q3

REPORT INFORMATION
  Report Type: 
  Country: None (occurrence: None)
  Receive Date: 20120725
  Receipt Date: 20120718
  Transmission Date: 20120928
  Serious: Yes (Disabling)
  Sender: FDA-Public Use
  Company Number: PT-009507513-1207PRT007699

PATIENT

DRUGS (1)
  1. NOMEGESTROL ACETATE/ESTRADIOL [Suspect]
     Indication: CONTRACEPTION
     Dosage: UNK
     Dates: start: 20120501

REACTIONS (1)
  - URTICARIA [None]
